FAERS Safety Report 4724489-3 (Version None)
Quarter: 2005Q3

REPORT INFORMATION
  Report Type: 
  Country: None (occurrence: None)
  Receive Date: 20050721
  Receipt Date: 20050712
  Transmission Date: 20060218
  Serious: Yes (Hospitalization)
  Sender: FDA-Public Use
  Company Number: 2005-07-0487

PATIENT
  Sex: Female

DRUGS (1)
  1. INTRON A [Suspect]
     Indication: PANCREATIC CARCINOMA
     Dosage: SUBCUTANEOUS
     Route: 058

REACTIONS (2)
  - HYPERCALCAEMIA [None]
  - HYPERPARATHYROIDISM [None]
